FAERS Safety Report 6738647-X (Version None)
Quarter: 2010Q2

REPORT INFORMATION
  Report Type: 
  Country: None (occurrence: None)
  Receive Date: 20100524
  Receipt Date: 20100412
  Transmission Date: 20101027
  Serious: Yes (Death, Other)
  Sender: FDA-Public Use
  Company Number: US-BAXTER-2010BH001599

PATIENT
  Age: 68 Year
  Sex: Male

DRUGS (1)
  1. HEPARIN SODIUM INJECTION [Suspect]
     Indication: DIALYSIS
     Route: 042
     Dates: start: 20080317

REACTIONS (6)
  - COMA [None]
  - DRUG HYPERSENSITIVITY [None]
  - HYPOTENSION [None]
  - PYELONEPHRITIS [None]
  - RENAL FAILURE ACUTE [None]
  - UROSEPSIS [None]
